FAERS Safety Report 6896093-2 (Version None)
Quarter: 2010Q3

REPORT INFORMATION
  Report Type: 
  Country: None (occurrence: None)
  Receive Date: 20100802
  Receipt Date: 20100723
  Transmission Date: 20110219
  Serious: Yes (Death, Hospitalization)
  Sender: FDA-Public Use
  Company Number: A0826711A

PATIENT
  Sex: Male

DRUGS (1)
  1. AVANDIA [Suspect]
     Indication: DIABETES MELLITUS
     Dosage: 4MG PER DAY
     Route: 048
     Dates: start: 20021001, end: 20030101

REACTIONS (5)
  - ANAEMIA [None]
  - BLISTER [None]
  - CARDIAC FAILURE CONGESTIVE [None]
  - DEATH [None]
  - HEART INJURY [None]
